FAERS Safety Report 5160656-5 (Version None)
Quarter: 2006Q4

REPORT INFORMATION
  Report Type: 
  Country: None (occurrence: None)
  Receive Date: 20061121
  Receipt Date: 20061108
  Transmission Date: 20070319
  Serious: Yes (Other)
  Sender: FDA-Public Use
  Company Number: 2006122077

PATIENT
  Age: 78 Year
  Sex: Male
  Weight: 76.6579 kg

DRUGS (6)
  1. SUTENT [Suspect]
     Indication: PROSTATE CANCER
     Dosage: 50 MG (50 MG, 1 IN 1 D), ORAL
     Route: 048
     Dates: start: 20060927, end: 20061011
  2. DILTIAZEM [Concomitant]
  3. ZOCOR [Concomitant]
  4. ALTACE [Concomitant]
  5. ASPIRIN [Concomitant]
  6. PROSCAR [Concomitant]

REACTIONS (5)
  - ASPARTATE AMINOTRANSFERASE INCREASED [None]
  - BLOOD ALKALINE PHOSPHATASE INCREASED [None]
  - BLOOD PHOSPHORUS INCREASED [None]
  - HAEMOGLOBIN DECREASED [None]
  - SYNCOPE [None]
